FAERS Safety Report 5623893-9 (Version None)
Quarter: 2008Q1

REPORT INFORMATION
  Report Type: 
  Country: None (occurrence: None)
  Receive Date: 20080207
  Receipt Date: 20080128
  Transmission Date: 20080703
  Serious: Yes (Other)
  Sender: FDA-Public Use
  Company Number: 2008AP000316

PATIENT
  Age: 32 Year
  Sex: Male

DRUGS (8)
  1. PAROXETINE HCL [Suspect]
     Indication: STRESS
     Dosage: PO; PO; PO ; TAB; PO; QD; PO
     Route: 048
     Dates: start: 20011005, end: 20020728
  2. PAROXETINE HCL [Suspect]
     Indication: STRESS
     Dosage: PO; PO; PO ; TAB; PO; QD; PO
     Route: 048
     Dates: end: 20050223
  3. PAROXETINE HCL [Suspect]
     Indication: STRESS
     Dosage: PO; PO; PO ; TAB; PO; QD; PO
     Route: 048
     Dates: start: 20010908
  4. PAROXETINE HCL [Suspect]
     Indication: STRESS
     Dosage: PO; PO; PO ; TAB; PO; QD; PO
     Route: 048
     Dates: start: 20040505
  5. PAROXETINE HCL [Suspect]
     Indication: STRESS
     Dosage: PO; PO; PO ; TAB; PO; QD; PO
     Route: 048
     Dates: start: 20040924
  6. VENLAFAXINE HCL [Concomitant]
  7. SERTRALINE HYDROCHLORIDE [Concomitant]
  8. METHADONE HCL [Concomitant]

REACTIONS (17)
  - AGITATION [None]
  - BRUXISM [None]
  - CONFUSIONAL STATE [None]
  - DISTURBANCE IN ATTENTION [None]
  - DIZZINESS [None]
  - DRUG WITHDRAWAL SYNDROME [None]
  - ERECTILE DYSFUNCTION [None]
  - HYPERHIDROSIS [None]
  - MEMORY IMPAIRMENT [None]
  - MULTIPLE INJURIES [None]
  - NIGHTMARE [None]
  - PARAESTHESIA [None]
  - POOR QUALITY SLEEP [None]
  - SLEEP DISORDER [None]
  - SUICIDAL IDEATION [None]
  - TINNITUS [None]
  - VERTIGO [None]
